FAERS Safety Report 5130192-0 (Version None)
Quarter: 2006Q4

REPORT INFORMATION
  Report Type: 
  Country: None (occurrence: None)
  Receive Date: 20061013
  Receipt Date: 20061002
  Transmission Date: 20070319
  Serious: Yes (Hospitalization)
  Sender: FDA-Public Use
  Company Number: 230925K06USA

PATIENT
  Age: 42 Year
  Sex: Male

DRUGS (1)
  1. REBIF [Suspect]
     Indication: MULTIPLE SCLEROSIS
     Dates: start: 20051118, end: 20060101

REACTIONS (5)
  - DEHYDRATION [None]
  - DYSPHAGIA [None]
  - EATING DISORDER [None]
  - PYREXIA [None]
  - REFUSAL OF TREATMENT BY PATIENT [None]
